FAERS Safety Report 4999746-6 (Version None)
Quarter: 2006Q2

REPORT INFORMATION
  Report Type: 
  Country: None (occurrence: None)
  Receive Date: 20060511
  Receipt Date: 20060419
  Transmission Date: 20061013
  Serious: Yes (Hospitalization)
  Sender: FDA-Public Use
  Company Number: RU-GLAXOSMITHKLINE-B0421839A

PATIENT
  Age: 85 Year
  Sex: Male

DRUGS (2)
  1. SERETIDE [Suspect]
     Route: 055
     Dates: start: 20060401, end: 20060401
  2. TEOTARD [Concomitant]
     Dosage: 300MG PER DAY
     Route: 048

REACTIONS (2)
  - CHRONIC OBSTRUCTIVE PULMONARY DISEASE [None]
  - DYSPNOEA [None]
